FAERS Safety Report 4791787-7 (Version None)
Quarter: 2005Q4

REPORT INFORMATION
  Report Type: 
  Country: None (occurrence: None)
  Receive Date: 20051007
  Receipt Date: 20050928
  Transmission Date: 20060501
  Serious: Yes (Hospitalization)
  Sender: FDA-Public Use
  Company Number: PHEH2005US10838

PATIENT
  Age: 23 Year
  Sex: Male

DRUGS (3)
  1. CLOZARIL [Suspect]
     Indication: SCHIZOPHRENIA
     Dosage: 50 MG, QD
     Route: 048
     Dates: start: 20050301
  2. DEPAKOTE [Concomitant]
  3. SEROQUEL [Concomitant]

REACTIONS (6)
  - CHEST PAIN [None]
  - FULL BLOOD COUNT ABNORMAL [None]
  - PERICARDIAL EFFUSION [None]
  - PYREXIA [None]
  - SINUS TACHYCARDIA [None]
  - VIRAL INFECTION [None]
